FAERS Safety Report 9446009 (Version 3)
Quarter: 2014Q1

REPORT INFORMATION
  Report Type: Spontaneous
  Country: US (occurrence: US)
  Receive Date: 20130807
  Receipt Date: 20140327
  Transmission Date: 20141002
  Serious: Yes (Hospitalization, Other)
  Sender: FDA-Public Use
  Company Number: US-B.I. PHARMACEUTICALS,INC./RIDGEFIELD-2013-BI-23860BP

PATIENT
  Sex: Male
  Weight: 90.72 kg

DRUGS (13)
  1. PRADAXA [Suspect]
     Indication: THROMBOSIS PROPHYLAXIS
     Dosage: 300 MG
     Route: 048
     Dates: start: 20110624, end: 20110805
  2. PRADAXA [Suspect]
     Indication: ATRIAL FIBRILLATION
  3. PRADAXA [Suspect]
     Indication: ATRIAL FLUTTER
  4. VITAMIN E [Concomitant]
     Route: 065
  5. ONE A DAY VITAMIN [Concomitant]
     Route: 065
  6. ZYRTEC [Concomitant]
     Route: 065
  7. NIASPAN [Concomitant]
     Dosage: 1000 MG
     Route: 065
     Dates: start: 2010
  8. LIPITOR [Concomitant]
     Dosage: 40 MG
     Route: 065
     Dates: start: 2010
  9. CARVEDILOL [Concomitant]
     Dosage: 50 MG
     Route: 065
     Dates: start: 2010
  10. ALDACTAZIDE [Concomitant]
     Route: 065
     Dates: start: 2010
  11. BENAZEPRIL [Concomitant]
     Dosage: 20 MG
     Route: 065
     Dates: start: 2010
  12. ASPIRIN [Concomitant]
     Dosage: 81 MG
     Route: 065
     Dates: end: 20110805
  13. CLARITIN [Concomitant]
     Route: 065

REACTIONS (5)
  - Gastrointestinal haemorrhage [Recovered/Resolved]
  - Haemorrhagic anaemia [Unknown]
  - Cerebrovascular accident [Unknown]
  - Myocardial infarction [Unknown]
  - Discomfort [Unknown]
